FAERS Safety Report 18209922 (Version 2)
Quarter: 2020Q3

REPORT INFORMATION
  Report Type: Spontaneous
  Country: RU (occurrence: RU)
  Receive Date: 20200828
  Receipt Date: 20200904
  Transmission Date: 20201103
  Serious: Yes (Hospitalization, Other)
  Sender: FDA-Public Use
  Company Number: RU-009507513-2008RUS013042

PATIENT
  Age: 64 Year
  Sex: Female
  Weight: 86 kg

DRUGS (1)
  1. XELEVIA [Suspect]
     Active Substance: SITAGLIPTIN PHOSPHATE
     Indication: DIABETES MELLITUS
     Dosage: 100 MILLIGRAM, QD
     Dates: start: 20200226, end: 20200410

REACTIONS (2)
  - Drug intolerance [Recovered/Resolved]
  - Haemorrhagic vasculitis [Recovered/Resolved]

NARRATIVE: CASE EVENT DATE: 20200405
